FAERS Safety Report 10432188 (Version 3)
Quarter: 2014Q3

REPORT INFORMATION
  Report Type: Spontaneous
  Country: FR (occurrence: FR)
  Receive Date: 20140905
  Receipt Date: 20140918
  Transmission Date: 20150326
  Serious: Yes (Death, Other)
  Sender: FDA-Public Use
  Company Number: FR-ROCHE-1457799

PATIENT
  Age: 73 Year
  Sex: Male

DRUGS (11)
  1. MABTHERA [Suspect]
     Active Substance: RITUXIMAB
     Indication: MANTLE CELL LYMPHOMA
     Route: 042
     Dates: start: 20130307, end: 20131014
  2. MOPRAL [Concomitant]
     Active Substance: OMEPRAZOLE SODIUM
  3. LASILIX [Concomitant]
     Active Substance: FUROSEMIDE
  4. DOMPERIDONE [Concomitant]
     Active Substance: DOMPERIDONE
  5. MABTHERA [Suspect]
     Active Substance: RITUXIMAB
     Route: 042
     Dates: start: 20140610, end: 20140613
  6. XATRAL [Concomitant]
     Active Substance: ALFUZOSIN
  7. AUGMENTIN [Concomitant]
     Active Substance: AMOXICILLIN\CLAVULANATE POTASSIUM
  8. LEVACT (FRANCE) [Suspect]
     Active Substance: BENDAMUSTINE HYDROCHLORIDE
     Indication: MANTLE CELL LYMPHOMA
     Route: 042
     Dates: start: 20140612, end: 20140612
  9. ALDACTONE [Concomitant]
     Active Substance: SPIRONOLACTONE
  10. SERESTA [Concomitant]
     Active Substance: OXAZEPAM
  11. FASTURTEC [Concomitant]
     Active Substance: RASBURICASE

REACTIONS (8)
  - Tachycardia [Fatal]
  - Lactic acidosis [Fatal]
  - Anuria [Fatal]
  - Cardiac failure [Fatal]
  - Disturbance in attention [Not Recovered/Not Resolved]
  - Pyrexia [Not Recovered/Not Resolved]
  - Leukocytosis [Fatal]
  - Lymphocytosis [Fatal]

NARRATIVE: CASE EVENT DATE: 20140612
